FAERS Safety Report 7932335-X (Version None)
Quarter: 2011Q4

REPORT INFORMATION
  Report Type: 
  Country: None (occurrence: None)
  Receive Date: 20111121
  Receipt Date: 20111108
  Transmission Date: 20120403
  Serious: Yes (Other)
  Sender: FDA-Public Use
  Company Number: US-ELI_LILLY_AND_COMPANY-US201111004285

PATIENT
  Age: 65 Year
  Sex: Female

DRUGS (2)
  1. FORTEO [Suspect]
     Dosage: UNK UNK, UNKNOWN
     Route: 065
     Dates: start: 20071201, end: 20080101
  2. FORTEO [Suspect]
     Dosage: UNK
     Route: 065
     Dates: start: 20111001

REACTIONS (2)
  - BREAST CANCER [None]
  - DRUG PRESCRIBING ERROR [None]
